FAERS Safety Report 4633878-7 (Version None)
Quarter: 2005Q2

REPORT INFORMATION
  Report Type: 
  Country: None (occurrence: None)
  Receive Date: 20050408
  Receipt Date: 20050401
  Transmission Date: 20051028
  Serious: Yes (Death)
  Sender: FDA-Public Use
  Company Number: B0376408A

PATIENT
  Age: 38 Year
  Sex: Male

DRUGS (4)
  1. MYLERAN [Suspect]
     Dosage: 4 MG/KG/ VARIABLE DOSE
  2. FLUDARABINE PHOSPHATE [Suspect]
     Dosage: INTRAVENOUS
     Route: 042
  3. ANTITHYMOCYTE IG [Concomitant]
  4. GRANULOCYTE COL. STIM. FACT [Concomitant]

REACTIONS (1)
  - GRAFT VERSUS HOST DISEASE [None]
